FAERS Safety Report 5963426-0 (Version None)
Quarter: 2008Q4

REPORT INFORMATION
  Report Type: 
  Country: None (occurrence: None)
  Receive Date: 20081124
  Receipt Date: 20081119
  Transmission Date: 20090506
  Serious: Yes (Death)
  Sender: FDA-Public Use
  Company Number: DE-AVENTIS-200820797GDDC

PATIENT
  Age: 72 Year
  Sex: Male
  Weight: 64 kg

DRUGS (3)
  1. AFLIBERCEPT [Suspect]
     Route: 042
     Dates: start: 20081105, end: 20081105
  2. DOCETAXEL [Suspect]
     Route: 042
     Dates: start: 20081105, end: 20081105
  3. PREDNISONE TAB [Suspect]
     Route: 048
     Dates: start: 20080813, end: 20081113

REACTIONS (1)
  - CARDIAC FAILURE ACUTE [None]
